FAERS Safety Report 14376921 (Version 1)
Quarter: 2018Q1

REPORT INFORMATION
  Report Type: Spontaneous
  Country: US (occurrence: US)
  Receive Date: 20180111
  Receipt Date: 20180111
  Transmission Date: 20180509
  Serious: No
  Sender: FDA-Public Use
  Company Number: US-DRREDDYS-USA/USA/17/0094469

PATIENT
  Age: 59 Year
  Sex: Male
  Weight: 97 kg

DRUGS (1)
  1. NICOTINE. [Suspect]
     Active Substance: NICOTINE
     Indication: SMOKING CESSATION THERAPY
     Route: 062

REACTIONS (4)
  - Treatment noncompliance [Unknown]
  - Drug dose omission [Unknown]
  - Product adhesion issue [Unknown]
  - Overdose [Unknown]

NARRATIVE: CASE EVENT DATE: 20171011
